FAERS Safety Report 7577307-2 (Version None)
Quarter: 2011Q2

REPORT INFORMATION
  Report Type: 
  Country: None (occurrence: None)
  Receive Date: 20110628
  Receipt Date: 20110614
  Transmission Date: 20111010
  Serious: Yes (Other)
  Sender: FDA-Public Use
  Company Number: US-BAYER-2011-047163

PATIENT
  Sex: Female

DRUGS (2)
  1. BETASERON [Suspect]
     Indication: MULTIPLE SCLEROSIS
     Dosage: 8 MIU, QOD
     Dates: start: 20051220, end: 20110519
  2. TRIAD [Suspect]

REACTIONS (4)
  - PAIN IN EXTREMITY [None]
  - PURULENCE [None]
  - INJECTION SITE PAIN [None]
  - SKIN DISCOLOURATION [None]
